FAERS Safety Report 14093456 (Version 1)
Quarter: 2017Q4

REPORT INFORMATION
  Report Type: Spontaneous
  Country: US (occurrence: US)
  Receive Date: 20171016
  Receipt Date: 20171016
  Transmission Date: 20180321
  Serious: Yes (Hospitalization, Other)
  Sender: FDA-Public Use
  Company Number: None

PATIENT
  Age: 36 Year
  Sex: Female
  Weight: 98 kg

DRUGS (15)
  1. GABAPENTIN. [Concomitant]
     Active Substance: GABAPENTIN
  2. LORAZEPAM. [Concomitant]
     Active Substance: LORAZEPAM
  3. DIPHENHYDRAMINE. [Concomitant]
     Active Substance: DIPHENHYDRAMINE
  4. PROPRANOLOL [Concomitant]
     Active Substance: PROPRANOLOL HYDROCHLORIDE
  5. NYSTATIN. [Concomitant]
     Active Substance: NYSTATIN
  6. PREDNISONE. [Concomitant]
     Active Substance: PREDNISONE
  7. DICLOFENAC [Concomitant]
     Active Substance: DICLOFENAC
  8. LEVOTHYROXINE. [Concomitant]
     Active Substance: LEVOTHYROXINE
  9. OMEPRAZOLE. [Concomitant]
     Active Substance: OMEPRAZOLE
  10. LAMICTAL [Suspect]
     Active Substance: LAMOTRIGINE
     Indication: BIPOLAR DISORDER
     Dates: start: 20170926, end: 20171005
  11. RANITIDINE. [Concomitant]
     Active Substance: RANITIDINE
  12. BUSPIRONE [Concomitant]
     Active Substance: BUSPIRONE HYDROCHLORIDE
  13. DESVENLAFAXINE. [Concomitant]
     Active Substance: DESVENLAFAXINE
  14. HYDROXYZINE [Concomitant]
     Active Substance: HYDROXYZINE HYDROCHLORIDE
  15. SUMARTRIPTAN [Concomitant]

REACTIONS (2)
  - Rash [None]
  - Stevens-Johnson syndrome [None]

NARRATIVE: CASE EVENT DATE: 20171010
